FAERS Safety Report 7822605-8 (Version None)
Quarter: 2011Q4

REPORT INFORMATION
  Report Type: 
  Country: None (occurrence: None)
  Receive Date: 20111018
  Receipt Date: 20110916
  Transmission Date: 20120403
  Serious: Yes (Hospitalization)
  Sender: FDA-Public Use
  Company Number: PHHY2011FR86477

PATIENT
  Sex: Female

DRUGS (12)
  1. MEPROBAMATE [Suspect]
     Dosage: 1 DF, UNK
     Dates: end: 20110617
  2. METFORMIN HCL [Concomitant]
  3. LEXOMIL [Suspect]
     Dosage: 3 MG, TID
  4. GALANTAMINE HYDROBROMIDE [Concomitant]
  5. TEGRETOL [Suspect]
     Dosage: 2 DF, UNK
     Dates: start: 20060101, end: 20110617
  6. LEXOMIL [Suspect]
     Dosage: 0.5 DF, TID
  7. LEXOMIL [Suspect]
     Dosage: 0.5 DF, QD
     Dates: end: 20110617
  8. PERINDOPRIL ERBUMINE [Concomitant]
  9. TRANXENE [Suspect]
     Dosage: 4 DF, UNK
  10. MEPROBAMATE [Suspect]
     Dosage: 2 DF, UNK
     Dates: start: 20050101
  11. TRANXENE [Suspect]
     Dosage: 1 DF, UNK
     Dates: end: 20110617
  12. PRAVASTATIN [Concomitant]

REACTIONS (8)
  - AGITATION [None]
  - CONFUSIONAL STATE [None]
  - ANXIETY [None]
  - DRUG WITHDRAWAL SYNDROME [None]
  - HYPONATRAEMIA [None]
  - HYPOKALAEMIA [None]
  - CONVULSION [None]
  - VOMITING [None]
